FAERS Safety Report 25873043 (Version 1)
Quarter: 2025Q4

REPORT INFORMATION
  Report Type: Spontaneous
  Country: US (occurrence: None)
  Receive Date: 20251001
  Receipt Date: 20251001
  Transmission Date: 20260118
  Serious: No
  Sender: FDA-CTU
  Company Number: None

PATIENT
  Age: 69 Year
  Sex: Male
  Weight: 134.1 kg

DRUGS (1)
  1. ZEPBOUND [Suspect]
     Active Substance: TIRZEPATIDE
     Indication: Weight control
     Dates: start: 20250925, end: 20251001

REACTIONS (3)
  - Palpitations [None]
  - Pancreatic haemorrhage [None]
  - Symptom recurrence [None]

NARRATIVE: CASE EVENT DATE: 20250928
